FAERS Safety Report 4946349-5 (Version None)
Quarter: 2006Q1

REPORT INFORMATION
  Report Type: 
  Country: None (occurrence: None)
  Receive Date: 20060317
  Receipt Date: 20051108
  Transmission Date: 20060701
  Serious: Yes (Life-Threatening, Other)
  Sender: FDA-Public Use
  Company Number: 2005AP05756

PATIENT
  Age: 25019 Day
  Sex: Male

DRUGS (14)
  1. IRESSA [Suspect]
     Indication: OROPHARYNGEAL CANCER STAGE UNSPECIFIED
     Dosage: CONCOMITANT THERAPY
     Route: 048
     Dates: start: 20051003, end: 20051105
  2. CISPLATIN [Suspect]
     Indication: OROPHARYNGEAL CANCER STAGE UNSPECIFIED
     Dates: start: 20051012, end: 20051102
  3. RADIOTHERAPY [Suspect]
     Indication: OROPHARYNGEAL CANCER STAGE UNSPECIFIED
     Dosage: 2 GY
     Dates: start: 20051012, end: 20051014
  4. RADIOTHERAPY [Suspect]
     Dosage: 2 GY
     Dates: start: 20051017, end: 20051021
  5. RADIOTHERAPY [Suspect]
     Dates: start: 20051024, end: 20051028
  6. RADIOTHERAPY [Suspect]
     Dosage: 2 GY
     Dates: start: 20051031, end: 20051104
  7. RADIOTHERAPY [Suspect]
     Dates: start: 20051117
  8. ACARD [Concomitant]
     Indication: MYOCARDIAL INFARCTION
     Route: 048
     Dates: start: 20050930, end: 20051105
  9. PENTAERYTHRITOL [Concomitant]
     Indication: MYOCARDIAL INFARCTION
     Route: 048
     Dates: start: 20050930, end: 20051105
  10. DEXAVEN [Concomitant]
     Indication: DYSPHAGIA
     Dosage: 8MG/500ML USED AS A RINSE
     Route: 048
     Dates: start: 20051025, end: 20051105
  11. KETONAL FORTE [Concomitant]
     Indication: DYSPHAGIA
     Route: 048
     Dates: start: 20051031, end: 20051102
  12. KETONAL FORTE [Concomitant]
     Route: 048
     Dates: start: 20051103, end: 20051105
  13. HYDROCORTISONE [Concomitant]
     Indication: DYSPHAGIA
     Route: 042
     Dates: start: 20051031, end: 20051105
  14. ZINACEF [Concomitant]
     Indication: INFECTION PROPHYLAXIS
     Route: 042
     Dates: start: 20051103

REACTIONS (1)
  - GASTRIC ULCER PERFORATION [None]
